FAERS Safety Report 12273756 (Version 11)
Quarter: 2019Q2

REPORT INFORMATION
  Report Type: Spontaneous
  Country: US (occurrence: US)
  Receive Date: 20160415
  Receipt Date: 20190610
  Transmission Date: 20190711
  Serious: Yes (Other)
  Sender: FDA-Public Use
  Company Number: US-PFIZER INC-2016213451

PATIENT
  Age: 47 Year
  Sex: Male

DRUGS (61)
  1. ZANTAC [Concomitant]
     Active Substance: RANITIDINE HYDROCHLORIDE
     Dosage: 1 DF, 2X/DAY
     Route: 048
     Dates: start: 20140515, end: 20150815
  2. FERROUS GLUCONATE [Concomitant]
     Active Substance: FERROUS GLUCONATE
     Dosage: 1 DF, 2X/DAY
     Route: 048
  3. RITUXAN [Concomitant]
     Active Substance: RITUXIMAB
     Dosage: UNK
     Route: 042
     Dates: start: 20141230, end: 20150116
  4. DILANTIN [Suspect]
     Active Substance: PHENYTOIN
     Dosage: 100 MG, DAILY
     Route: 048
     Dates: start: 19991121
  5. DILANTIN [Suspect]
     Active Substance: PHENYTOIN
     Dosage: 100 MG, 4X/DAY (FOUR TIMES A DAY)
     Route: 048
     Dates: start: 20041208
  6. DILANTIN [Suspect]
     Active Substance: PHENYTOIN
     Dosage: 100 MG, UNK
     Route: 048
     Dates: start: 20100123
  7. DILANTIN [Suspect]
     Active Substance: PHENYTOIN
     Dosage: 400 MG, 1X/DAY (100 MG 4 CAPSULES AT BED TIME)
     Route: 048
     Dates: start: 20110210
  8. MULTIVITAMIN ORAL [Concomitant]
     Dosage: 1 DF, 1X/DAY
     Route: 048
  9. ANECREAM [Concomitant]
     Active Substance: LIDOCAINE
     Dosage: APPLY AS DIRECTED TO AFFECTED AREA
  10. MEDROL [Concomitant]
     Active Substance: METHYLPREDNISOLONE
     Dosage: TAKE 1 TABLET DAILY UNTIL GONE
     Route: 048
  11. DILANTIN [Suspect]
     Active Substance: PHENYTOIN
     Dosage: 100 MG, DAILY
     Route: 048
     Dates: start: 19970428
  12. DILANTIN [Suspect]
     Active Substance: PHENYTOIN
     Dosage: 100 MG, UNK
     Route: 048
     Dates: start: 20090505
  13. DILANTIN [Suspect]
     Active Substance: PHENYTOIN
     Dosage: 100 MG, UNK
     Route: 048
     Dates: start: 20091105
  14. DILANTIN [Suspect]
     Active Substance: PHENYTOIN
     Dosage: 100 MG, UNK
     Route: 048
     Dates: start: 20100301
  15. DILANTIN [Suspect]
     Active Substance: PHENYTOIN
     Dosage: 300 MG, 1X/DAY (100 MG 3 CAPSULES AT BED TIME)
     Route: 048
     Dates: start: 20140507
  16. OCTAGAM IMMUNE GLOBULIN (HUMAN) [Concomitant]
     Active Substance: HUMAN IMMUNOGLOBULIN G
     Dosage: 30 G, 1X/DAY (DAILY FOR 5 CONSECUTIVE DAYS, REPEAT REGIMEN MONTHLY)
     Route: 042
     Dates: start: 20140515, end: 20150531
  17. TEMOVATE [Concomitant]
     Active Substance: CLOBETASOL PROPIONATE
     Dosage: APPLY 2 TIMES A DAY TO AFFECTED AREA
     Route: 061
  18. DILANTIN [Suspect]
     Active Substance: PHENYTOIN
     Dosage: 400 MG, 1X/DAY (100 MG 4 CAPSULES AT BED TIME)
     Route: 048
     Dates: start: 20120619
  19. DILANTIN [Suspect]
     Active Substance: PHENYTOIN
     Dosage: 400 MG, DAILY
     Route: 048
     Dates: start: 20100319
  20. DILANTIN [Suspect]
     Active Substance: PHENYTOIN
     Dosage: 500 MG, DAILY
     Route: 048
     Dates: start: 20130529
  21. SYNTHROID [Concomitant]
     Active Substance: LEVOTHYROXINE SODIUM
     Dosage: 1 DF, 1X/DAY
     Route: 048
     Dates: start: 20150314, end: 20160708
  22. ONFI [Concomitant]
     Active Substance: CLOBAZAM
     Dosage: 0.5 DF, 2X/DAY
     Route: 048
     Dates: start: 20141203
  23. BIO-35, GLUTEN FREE [Concomitant]
     Dosage: 1 DF, 1X/DAY
     Route: 048
  24. PERIACTIN [Concomitant]
     Active Substance: CYPROHEPTADINE HYDROCHLORIDE
     Dosage: TAKE 1 TABLET 3 TIMES A DAY
     Route: 048
  25. TRILEPTAL [Concomitant]
     Active Substance: OXCARBAZEPINE
     Dosage: UNK
  26. TOPAMAX [Concomitant]
     Active Substance: TOPIRAMATE
     Dosage: UNK
  27. DILANTIN [Suspect]
     Active Substance: PHENYTOIN
     Dosage: 100 MG, UNK
     Route: 048
     Dates: start: 20090715
  28. DILANTIN [Suspect]
     Active Substance: PHENYTOIN
     Dosage: 30 MG, UNK
     Route: 048
     Dates: start: 20090806
  29. DILANTIN [Suspect]
     Active Substance: PHENYTOIN
     Dosage: 400 MG, 1X/DAY (100 MG 4 CAPSULES AT BED TIME)
     Route: 048
     Dates: start: 20110701
  30. DILANTIN [Suspect]
     Active Substance: PHENYTOIN
     Dosage: UNK
     Route: 048
     Dates: start: 20091008, end: 20171013
  31. DIVALPROEX [Concomitant]
     Active Substance: DIVALPROEX SODIUM
     Indication: MYOCLONUS
     Dosage: TAKE 1 TABLET 2 TIMES A DAY
     Route: 048
  32. DILANTIN [Suspect]
     Active Substance: PHENYTOIN
     Indication: JUVENILE MYOCLONIC EPILEPSY
     Dosage: UNK
     Dates: start: 1983
  33. DILANTIN [Suspect]
     Active Substance: PHENYTOIN
     Dosage: 100 MG, DAILY
     Route: 048
     Dates: start: 20010117
  34. DILANTIN [Suspect]
     Active Substance: PHENYTOIN
     Dosage: 400 MG, DAILY (PER DAY AT BED TIME)
     Route: 048
     Dates: start: 200501
  35. DILANTIN [Suspect]
     Active Substance: PHENYTOIN
     Dosage: 100 MG, UNK
     Route: 048
     Dates: start: 20090805
  36. DILANTIN [Suspect]
     Active Substance: PHENYTOIN
     Dosage: 100 MG, UNK
     Route: 048
     Dates: start: 20090925
  37. DILANTIN [Suspect]
     Active Substance: PHENYTOIN
     Dosage: 500 MG, 1X/DAY (100 MG 5 CAPSULES AT BED TIME)
     Route: 048
     Dates: start: 20121207
  38. DILANTIN [Suspect]
     Active Substance: PHENYTOIN
     Dosage: 500 MG, 1X/DAY (100 MG 5 CAPSULES AT BED TIME)
     Route: 048
     Dates: start: 20130725
  39. KLONOPIN [Concomitant]
     Active Substance: CLONAZEPAM
     Indication: MUSCLE SPASMS
     Dosage: 2 DF, 3X/DAY
     Route: 048
     Dates: start: 20150312, end: 20150912
  40. DEPAKOTE [Concomitant]
     Active Substance: DIVALPROEX SODIUM
     Indication: MYOCLONUS
     Dosage: 1 DF, 2X/DAY, 125 MG TBEC DR TAB, TAKE 1 TABLET ORALLY 2 TIMES A DAY
     Route: 048
  41. DILANTIN [Suspect]
     Active Substance: PHENYTOIN
     Dosage: 100 MG, UNK
     Route: 048
     Dates: start: 20090612
  42. DILANTIN [Suspect]
     Active Substance: PHENYTOIN
     Dosage: 400 MG, 1X/DAY (100 MG 4 CAPSULES AT BED TIME)
     Route: 048
     Dates: start: 20101123
  43. KLONOPIN [Concomitant]
     Active Substance: CLONAZEPAM
     Dosage: 0.5 MG TWO TIMES DAILY
  44. ZARONTIN [Concomitant]
     Active Substance: ETHOSUXIMIDE
     Dosage: UNK
  45. DELTASONE [Concomitant]
     Active Substance: PREDNISONE
     Dosage: 3 DF, 1X/DAY
     Route: 048
     Dates: start: 20140706, end: 20151008
  46. VIMPAT [Concomitant]
     Active Substance: LACOSAMIDE
     Dosage: UNK
  47. DILANTIN [Suspect]
     Active Substance: PHENYTOIN
     Indication: SEIZURE
     Dosage: 600 MG, DAILY
     Dates: start: 1986
  48. DILANTIN [Suspect]
     Active Substance: PHENYTOIN
     Dosage: 500 MG, DAILY (PER DAY)
     Route: 048
     Dates: start: 200511
  49. DILANTIN [Suspect]
     Active Substance: PHENYTOIN
     Dosage: 400 MG, 1X/DAY (100 MG 4 CAPSULES AT BED TIME)
     Route: 048
     Dates: start: 20121019
  50. LEVOTHROID [Concomitant]
     Active Substance: LEVOTHYROXINE SODIUM
     Dosage: 1 DF, 1X/DAY
     Route: 048
     Dates: start: 20150314, end: 20160708
  51. FLONASE [Concomitant]
     Active Substance: FLUTICASONE PROPIONATE
     Dosage: USE 2 SPRAYS IN EACH NOSTRIL DAILY
     Route: 045
  52. NEURONTIN [Concomitant]
     Active Substance: GABAPENTIN
     Dosage: 2 DF, 1X/DAY
  53. LYRICA [Concomitant]
     Active Substance: PREGABALIN
     Dosage: UNK
  54. DILANTIN [Suspect]
     Active Substance: PHENYTOIN
     Dosage: 100 MG, UNK
     Route: 048
     Dates: start: 20091213
  55. DILANTIN [Suspect]
     Active Substance: PHENYTOIN
     Dosage: 500 MG, 1X/DAY (100 MG 5 CAPSULES AT BED TIME)
     Route: 048
     Dates: start: 20130303
  56. KLONOPIN [Concomitant]
     Active Substance: CLONAZEPAM
     Indication: SEIZURE
     Dosage: 1 DF, 3X/DAY
     Route: 048
  57. LAMICTAL [Concomitant]
     Active Substance: LAMOTRIGINE
     Indication: MYOCLONUS
     Dosage: 1 TABLET 2 TIMES A DAY OR AS DIRECTED
     Route: 048
  58. KEPPRA [Concomitant]
     Active Substance: LEVETIRACETAM
     Indication: SEIZURE
     Dosage: 500 MG, 2X/DAY
     Route: 048
  59. LEVITRA [Concomitant]
     Active Substance: VARDENAFIL HYDROCHLORIDE TRIHYDRATE
     Dosage: 0.5 DF, 1X/DAY, TAKE 1/2 TAB 1 HR PRIOR TO SEXUAL ACTIVITY DO NOT EXCEED 1 DOSE IN 24 HOURS
     Route: 048
  60. DAPSONE. [Concomitant]
     Active Substance: DAPSONE
     Dosage: 2 DF, 3X/DAY
     Route: 048
     Dates: start: 20150313, end: 20160708
  61. ONFI [Concomitant]
     Active Substance: CLOBAZAM
     Dosage: 1 DF, 2X/DAY
     Route: 048
     Dates: end: 20150603

REACTIONS (14)
  - Pain [Unknown]
  - Soft tissue swelling [Unknown]
  - Dysarthria [Unknown]
  - Encephalitis [Unknown]
  - Cerebral ischaemia [Unknown]
  - Therapeutic product effect incomplete [Unknown]
  - Sinus disorder [Unknown]
  - Cerebellar ataxia [Unknown]
  - Diplopia [Unknown]
  - Neuromyopathy [Unknown]
  - Cerebellar atrophy [Unknown]
  - Fall [Unknown]
  - Skin laceration [Unknown]
  - Cognitive disorder [Unknown]

NARRATIVE: CASE EVENT DATE: 2008
